FAERS Safety Report 8814998 (Version 2)
Quarter: 2013Q1

REPORT INFORMATION
  Report Type: Spontaneous
  Country: JP (occurrence: JP)
  Receive Date: 20120928
  Receipt Date: 20130222
  Transmission Date: 20140127
  Serious: Yes (Death, Other)
  Sender: FDA-Public Use
  Company Number: JP-PFIZER INC-2012240088

PATIENT
  Age: 54 Year
  Sex: Male

DRUGS (4)
  1. CAMPTO [Suspect]
     Indication: RECTAL CANCER
     Dosage: UNK, ONCE A DAY
     Route: 041
  2. LEVOFOLINATE [Concomitant]
     Indication: RECTAL CANCER
     Dosage: UNK
     Route: 042
  3. 5-FU [Concomitant]
     Indication: RECTAL CANCER
  4. AVASTIN [Concomitant]
     Indication: RECTAL CANCER

REACTIONS (1)
  - Interstitial lung disease [Fatal]
